FAERS Safety Report 6100156-9 (Version None)
Quarter: 2009Q1

REPORT INFORMATION
  Report Type: 
  Country: None (occurrence: None)
  Receive Date: 20090303
  Receipt Date: 20090224
  Transmission Date: 20090719
  Serious: Yes (Other)
  Sender: FDA-Public Use
  Company Number: US-BAYER-200837336NA

PATIENT
  Age: 60 Year
  Sex: Female

DRUGS (3)
  1. FLUDARA [Suspect]
     Indication: CHRONIC LYMPHOCYTIC LEUKAEMIA
     Dosage: TOTAL DAILY DOSE: 50 MG  UNIT DOSE: 25 MG/M2
     Dates: start: 20061018, end: 20070406
  2. RITUXAN [Concomitant]
     Indication: CHRONIC LYMPHOCYTIC LEUKAEMIA
  3. REVLIMID [Concomitant]

REACTIONS (2)
  - 5Q MINUS SYNDROME [None]
  - MYELODYSPLASTIC SYNDROME TRANSFORMATION [None]
